FAERS Safety Report 6866773-3 (Version None)
Quarter: 2010Q2

REPORT INFORMATION
  Report Type: 
  Country: None (occurrence: None)
  Receive Date: 20100610
  Receipt Date: 20100225
  Transmission Date: 20101027
  Serious: No
  Sender: FDA-Public Use
  Company Number: 2010SP012911

PATIENT
  Age: 25 Year
  Sex: Male

DRUGS (1)
  1. SAPHRIS [Suspect]
     Indication: BIPOLAR DISORDER
     Dosage: ;SL 5 MG;BID;SL
     Dates: start: 20100224

REACTIONS (2)
  - DIZZINESS [None]
  - HEART RATE INCREASED [None]
